FAERS Safety Report 13777350 (Version 3)
Quarter: 2017Q4

REPORT INFORMATION
  Report Type: Report from Study
  Country: CA (occurrence: CA)
  Receive Date: 20170721
  Receipt Date: 20171112
  Transmission Date: 20180320
  Serious: Yes (Hospitalization, Other)
  Sender: FDA-Public Use
  Company Number: CA-BRISTOL-MYERS SQUIBB COMPANY-BMS-2017-055526

PATIENT
  Age: 57 Year
  Sex: Male

DRUGS (1)
  1. ABATACEPT [Suspect]
     Active Substance: ABATACEPT
     Indication: RHEUMATOID ARTHRITIS
     Dosage: 125 MG/ML, QWK
     Route: 058
     Dates: start: 20170612

REACTIONS (15)
  - Sciatica [Unknown]
  - Anxiety [Not Recovered/Not Resolved]
  - Chest injury [Unknown]
  - Rheumatoid arthritis [Unknown]
  - Nausea [Unknown]
  - Back pain [Unknown]
  - Sleep disorder [Not Recovered/Not Resolved]
  - Gait inability [Unknown]
  - Fall [Not Recovered/Not Resolved]
  - Arthropathy [Unknown]
  - Dizziness [Not Recovered/Not Resolved]
  - Pain [Not Recovered/Not Resolved]
  - Arthralgia [Unknown]
  - Vomiting [Unknown]
  - Panic attack [Unknown]

NARRATIVE: CASE EVENT DATE: 20170618
